FAERS Safety Report 8427612-2 (Version None)
Quarter: 2012Q2

REPORT INFORMATION
  Report Type: 
  Country: None (occurrence: None)
  Receive Date: 20120611
  Receipt Date: 20120516
  Transmission Date: 20120825
  Serious: Yes (Other)
  Sender: FDA-Public Use
  Company Number: US-SHIONOGI, INC-2012000117

PATIENT

DRUGS (4)
  1. CLONIDINE HCL [Concomitant]
     Dosage: UNK
  2. KAPVAY [Suspect]
     Indication: ATTENTION DEFICIT/HYPERACTIVITY DISORDER
     Dosage: 0.1 MG, BID
     Dates: start: 20120319
  3. KEPPRA [Concomitant]
     Dosage: UNK
     Dates: start: 20120301, end: 20120301
  4. DEPAKOTE [Concomitant]
     Dosage: UNK

REACTIONS (6)
  - FORMICATION [None]
  - HALLUCINATION, VISUAL [None]
  - RESTLESSNESS [None]
  - PSYCHOMOTOR HYPERACTIVITY [None]
  - PALLOR [None]
  - MEDICATION ERROR [None]
